FAERS Safety Report 15298040 (Version 1)
Quarter: 2018Q4

REPORT INFORMATION
  Report Type: Spontaneous
  Country: IN (occurrence: IN)
  Receive Date: 20180820
  Receipt Date: 20180820
  Transmission Date: 20190204
  Serious: Yes (Hospitalization, Other)
  Sender: FDA-Public Use
  Company Number: IN-009507513-1808IND005728

PATIENT
  Sex: Male

DRUGS (2)
  1. JANUMET [Suspect]
     Active Substance: METFORMIN HYDROCHLORIDE\SITAGLIPTIN PHOSPHATE
     Dosage: UNK
     Route: 048
  2. METFORMIN HYDROCHLORIDE (+) TENELIGLIPTIN HYDROBROMIDE [Suspect]
     Active Substance: METFORMIN\TENELIGLIPTIN
     Dosage: UNK

REACTIONS (1)
  - Diabetes mellitus inadequate control [Recovering/Resolving]
